FAERS Safety Report 7301736-5 (Version None)
Quarter: 2011Q1

REPORT INFORMATION
  Report Type: 
  Country: None (occurrence: None)
  Receive Date: 20110218
  Receipt Date: 20110214
  Transmission Date: 20110831
  Serious: Yes (Congenital Anomaly)
  Sender: FDA-Public Use
  Company Number: A0811868A

PATIENT
  Sex: Female
  Weight: 3.1 kg

DRUGS (4)
  1. ANTIHYPERTENSIVE [Concomitant]
     Route: 064
  2. VITAMIN AND MINERAL PRENATAL SUPPLEMENT W/ FOLIC ACID CAP [Concomitant]
     Route: 064
  3. PAXIL CR [Suspect]
     Indication: DEPRESSION
     Route: 064
     Dates: start: 20030801, end: 20080101
  4. PAXIL [Suspect]
     Indication: DEPRESSION
     Dosage: 20MG PER DAY
     Route: 064
     Dates: start: 20030901, end: 20040701

REACTIONS (5)
  - ANOMALOUS PULMONARY VENOUS CONNECTION [None]
  - MATERNAL DRUGS AFFECTING FOETUS [None]
  - DRUG EXPOSURE DURING PREGNANCY [None]
  - ATRIAL SEPTAL DEFECT [None]
  - CARDIAC DISORDER [None]
